FAERS Safety Report 10149995 (Version 1)
Quarter: 2014Q2

REPORT INFORMATION
  Report Type: Spontaneous
  Country: US (occurrence: None)
  Receive Date: 20140501
  Receipt Date: 20140501
  Transmission Date: 20141212
  Serious: Yes (Hospitalization)
  Sender: FDA-Public Use
  Company Number: None

PATIENT
  Age: 40 Year
  Sex: Male
  Weight: 76 kg

DRUGS (2)
  1. APREPITANT [Suspect]
     Indication: ANTIEMETIC SUPPORTIVE CARE
  2. MULITPLE MEDS [Concomitant]

REACTIONS (3)
  - Acute myocardial infarction [None]
  - Vasospasm [None]
  - Incorrect drug administration duration [None]
